FAERS Safety Report 16675717 (Version 1)
Quarter: 2019Q3

REPORT INFORMATION
  Report Type: Spontaneous
  Country: DE (occurrence: DE)
  Receive Date: 20190806
  Receipt Date: 20190806
  Transmission Date: 20191004
  Serious: Yes (Life-Threatening)
  Sender: FDA-Public Use
  Company Number: DE-NOVOPROD-675916

PATIENT
  Age: 53 Year
  Sex: Female
  Weight: 79 kg

DRUGS (16)
  1. FUROSEMIDE. [Concomitant]
     Active Substance: FUROSEMIDE
     Dosage: 125 MG, QD
     Route: 065
  2. PALLADON [Concomitant]
     Active Substance: HYDROMORPHONE
     Dosage: 2 MG(WITH PAIN PEAKS UP TO 3X DAILY)
     Route: 042
  3. ONDANSETRON [Concomitant]
     Active Substance: ONDANSETRON
     Indication: DIARRHOEA
     Dosage: 4    MG,  APPLICATION UP TO 4 DAILY
     Route: 065
  4. FORTIMEL [Concomitant]
     Active Substance: DIETARY SUPPLEMENT
     Dosage: 2 DF, QD(2 SEPARATED DOSES)
     Route: 065
  5. NUTRIFLEX LIPID PLUS [Concomitant]
     Active Substance: AMINO ACIDS\DEXTROSE\ELECTROLYTES NOS\SOYBEAN OIL
     Dosage: 1250 ML
     Route: 065
  6. SPIRONOLACTON [Concomitant]
     Active Substance: SPIRONOLACTONE
     Dosage: 25 MG, QD
     Route: 065
  7. TAVOR EXPIDET [Concomitant]
     Active Substance: LORAZEPAM
     Dosage: 0.5 MG, QD
     Route: 065
  8. PANTOPRAZOLE [Concomitant]
     Active Substance: PANTOPRAZOLE
     Dosage: 40 MG, QD
     Route: 065
  9. HUMALOG [Concomitant]
     Active Substance: INSULIN LISPRO
     Dosage: UNK
     Route: 065
  10. LOPERAMID [Concomitant]
     Active Substance: LOPERAMIDE
     Indication: DIARRHOEA
     Dosage: UNK
     Route: 065
  11. SAB SIMPLEX [DIMETICONE] [Concomitant]
     Dosage: 3 DF, QD(EVERY DAYS 3 SEPARATED DOSES   )
     Route: 065
  12. VOMEX A [Concomitant]
     Active Substance: DIMENHYDRINATE
     Indication: NAUSEA
     Dosage: UNK
     Route: 042
  13. TOUJEO [Concomitant]
     Active Substance: INSULIN GLARGINE
     Dosage: DAILY DOSE: 30 IU INTERNATIONAL UNIT(S) EVERY DAYS
     Route: 065
  14. LIRAGLUTIDE [Suspect]
     Active Substance: LIRAGLUTIDE
     Indication: INSULIN-REQUIRING TYPE 2 DIABETES MELLITUS
     Dosage: 1 DF, QD(1.2 MG-1.8 MG  DAILY)
     Route: 048
     Dates: start: 2013, end: 2017
  15. SITAGLIPTIN [Suspect]
     Active Substance: SITAGLIPTIN
     Indication: INSULIN-REQUIRING TYPE 2 DIABETES MELLITUS
     Dosage: 100 MG, QD(EVERY DAYS 2 SEPARATED DOSES  )
     Route: 048
     Dates: start: 2010, end: 2013
  16. FENTANYL. [Concomitant]
     Active Substance: FENTANYL
     Dosage: 75 ?G, QD(EVERY 3 DAYS)
     Route: 065

REACTIONS (4)
  - Pancreatic carcinoma [Unknown]
  - Incorrect route of product administration [Unknown]
  - Metastases to liver [Unknown]
  - Malignant peritoneal neoplasm [Unknown]

NARRATIVE: CASE EVENT DATE: 201904
